FAERS Safety Report 19391970 (Version 2)
Quarter: 2021Q3

REPORT INFORMATION
  Report Type: Report from Study
  Country: US (occurrence: US)
  Receive Date: 20210608
  Receipt Date: 20210812
  Transmission Date: 20211014
  Serious: No
  Sender: FDA-Public Use
  Company Number: NVSC2021US125749

PATIENT
  Age: 34 Year
  Sex: Female

DRUGS (2)
  1. ENTRESTO [Suspect]
     Active Substance: SACUBITRIL\VALSARTAN
     Indication: CARDIAC FAILURE
     Dosage: 3 DF, BID (24.26 MG, (2 TABS AM AND 1 TAB PM)
     Route: 048
     Dates: start: 20210403
  2. ENTRESTO [Suspect]
     Active Substance: SACUBITRIL\VALSARTAN
     Dosage: 1.5 DF, BID(49.51 MG ONE AND A HALF TABLETS TWICE A DAY)
     Route: 048

REACTIONS (3)
  - Heart rate increased [Unknown]
  - Incorrect dose administered [Unknown]
  - Wrong technique in product usage process [Unknown]

NARRATIVE: CASE EVENT DATE: 20210601
